FAERS Safety Report 9324823 (Version 2)
Quarter: 2013Q3

REPORT INFORMATION
  Report Type: Spontaneous
  Country: US (occurrence: US)
  Receive Date: 20130603
  Receipt Date: 20130718
  Transmission Date: 20140515
  Serious: No
  Sender: FDA-Public Use
  Company Number: US-PFIZER INC-2013164596

PATIENT
  Age: 55 Year
  Sex: Male
  Weight: 122 kg

DRUGS (3)
  1. AZITHROMYCIN [Suspect]
     Indication: PREOPERATIVE CARE
     Dosage: 250 MG, 2X/DAY
     Route: 048
     Dates: start: 201305, end: 201305
  2. AZITHROMYCIN [Suspect]
     Indication: DENTAL IMPLANTATION
     Dosage: 250 MG, 1X/DAY
     Route: 048
     Dates: start: 201305, end: 201305
  3. BETADINE [Suspect]
     Dosage: UNK

REACTIONS (4)
  - Hypersensitivity [Not Recovered/Not Resolved]
  - Pruritus [Not Recovered/Not Resolved]
  - Headache [Not Recovered/Not Resolved]
  - Allergy to chemicals [Unknown]
